FAERS Safety Report 20920314 (Version 1)
Quarter: 2022Q2

REPORT INFORMATION
  Report Type: Spontaneous
  Country: US (occurrence: None)
  Receive Date: 20220604
  Receipt Date: 20220604
  Transmission Date: 20220720
  Serious: No
  Sender: FDA-Public Use
  Company Number: None

PATIENT
  Age: 23 Year
  Sex: Female
  Weight: 121.5 kg

DRUGS (9)
  1. DEXTROAMPHET SACCHARAT, AMPHET ASPARTATE, DEXTROAMPHET SULFATE AND AMP [Suspect]
     Active Substance: AMPHETAMINE ASPARTATE\AMPHETAMINE SULFATE\DEXTROAMPHETAMINE SACCHARATE\DEXTROAMPHETAMINE SULFATE
     Indication: Attention deficit hyperactivity disorder
     Dosage: OTHER QUANTITY : 2.5 TABLET(S);?FREQUENCY : AS NEEDED;?
     Route: 048
     Dates: start: 20220529, end: 20220603
  2. LAMICTAL [Concomitant]
     Active Substance: LAMOTRIGINE
  3. PROZAC [Concomitant]
     Active Substance: FLUOXETINE HYDROCHLORIDE
  4. ASCORBIC ACID [Concomitant]
     Active Substance: ASCORBIC ACID
  5. VITAMIN E [Concomitant]
     Active Substance: .ALPHA.-TOCOPHEROL
  6. VITAMIN B12 [Concomitant]
     Active Substance: CYANOCOBALAMIN
  7. MAGNESIUM [Concomitant]
     Active Substance: MAGNESIUM
  8. ZINC [Concomitant]
     Active Substance: ZINC
  9. HAIR/SKIN/NAILS [Concomitant]

REACTIONS (12)
  - Product substitution issue [None]
  - Product quality issue [None]
  - Product quality issue [None]
  - Drug ineffective [None]
  - Headache [None]
  - Decreased appetite [None]
  - Palpitations [None]
  - Tremor [None]
  - Mental status changes [None]
  - Affective disorder [None]
  - Nervousness [None]
  - Impaired work ability [None]
